FAERS Safety Report 7121012-3 (Version None)
Quarter: 2010Q4

REPORT INFORMATION
  Report Type: 
  Country: None (occurrence: None)
  Receive Date: 20101124
  Receipt Date: 20100205
  Transmission Date: 20110411
  Serious: Yes (Hospitalization)
  Sender: FDA-Public Use
  Company Number: US-PFIZER INC-2010013865

PATIENT
  Sex: Male

DRUGS (2)
  1. TIKOSYN [Suspect]
  2. NAROPIN [Suspect]

REACTIONS (2)
  - NASOPHARYNGITIS [None]
  - SHOULDER OPERATION [None]
